FAERS Safety Report 9957276 (Version 1)
Quarter: 2014Q1

REPORT INFORMATION
  Report Type: Report from Study
  Country: US (occurrence: US)
  Receive Date: 20140304
  Receipt Date: 20140304
  Transmission Date: 20141002
  Serious: No
  Sender: FDA-Public Use
  Company Number: US-ABBVIE-13P-163-1096556-00

PATIENT
  Age: 47 Year
  Sex: Female
  Weight: 77.18 kg

DRUGS (2)
  1. HUMIRA [Suspect]
     Indication: PSORIASIS
     Dates: start: 2011
  2. ALEVE [Concomitant]
     Indication: PAIN

REACTIONS (5)
  - Skin infection [Recovered/Resolved]
  - Pain [Recovered/Resolved]
  - Skin ulcer [Recovered/Resolved]
  - Dermatitis [Recovered/Resolved]
  - Swelling [Recovered/Resolved]
